FAERS Safety Report 23138835 (Version 1)
Quarter: 2023Q4

REPORT INFORMATION
  Report Type: Spontaneous
  Country: US (occurrence: None)
  Receive Date: 20231101
  Receipt Date: 20231101
  Transmission Date: 20240110
  Serious: Yes (Other)
  Sender: FDA-Public Use
  Company Number: None

PATIENT
  Age: 90 Year
  Sex: Female
  Weight: 67.5 kg

DRUGS (1)
  1. BRIMONIDINE TARTRATE [Suspect]
     Active Substance: BRIMONIDINE TARTRATE
     Indication: Glaucoma
     Dosage: OTHER QUANTITY : 1 DROP(S);?
     Route: 047
     Dates: start: 20231031, end: 20231031

REACTIONS (3)
  - Instillation site irritation [None]
  - Eye pain [None]
  - Photophobia [None]

NARRATIVE: CASE EVENT DATE: 20231101
